FAERS Safety Report 8185975-X (Version None)
Quarter: 2012Q1

REPORT INFORMATION
  Report Type: 
  Country: None (occurrence: None)
  Receive Date: 20120305
  Receipt Date: 20120221
  Transmission Date: 20120608
  Serious: Yes (Hospitalization)
  Sender: FDA-Public Use
  Company Number: PL-MYLANLABS-2012S1004125

PATIENT
  Age: 30 Year
  Sex: Female

DRUGS (1)
  1. VALPROIC ACID [Suspect]
     Indication: CONVULSION
     Route: 065

REACTIONS (3)
  - ONYCHOLYSIS [None]
  - CYANOSIS [None]
  - NAIL DISCOLOURATION [None]
